FAERS Safety Report 7151088-9 (Version None)
Quarter: 2010Q4

REPORT INFORMATION
  Report Type: 
  Country: None (occurrence: None)
  Receive Date: 20101122
  Receipt Date: 20101110
  Transmission Date: 20110411
  Serious: Yes (Hospitalization)
  Sender: FDA-Public Use
  Company Number: 2010SP059384

PATIENT
  Age: 48 Year
  Sex: Female
  Weight: 66 kg

DRUGS (10)
  1. DEXAMETHASONE [Suspect]
     Indication: MULTIPLE MYELOMA
     Dosage: 40 MG PO
     Route: 048
     Dates: start: 20100730, end: 20100921
  2. VELCADE [Suspect]
     Indication: MULTIPLE MYELOMA
     Dosage: 2.2 MG, IV
     Route: 042
     Dates: start: 20100730, end: 20100921
  3. ACYCLOVIR [Concomitant]
  4. ALLOPURINOL [Concomitant]
  5. DOCUSATE SODIUM [Concomitant]
  6. ENTECAVIR [Concomitant]
  7. LANSOPRAZOLE [Concomitant]
  8. MORPHINE SULFATE [Concomitant]
  9. ORAMORPH SR [Concomitant]
  10. SENNA [Concomitant]

REACTIONS (10)
  - CONSTIPATION [None]
  - HEART RATE INCREASED [None]
  - HYPERHIDROSIS [None]
  - MUSCULAR WEAKNESS [None]
  - NAUSEA [None]
  - NEUTROPENIC SEPSIS [None]
  - OEDEMA PERIPHERAL [None]
  - SWELLING FACE [None]
  - TONGUE COATED [None]
  - TONGUE DRY [None]
